FAERS Safety Report 8782660 (Version 5)
Quarter: 2013Q1

REPORT INFORMATION
  Report Type: Spontaneous
  Country: US (occurrence: US)
  Receive Date: 20120913
  Receipt Date: 20130114
  Transmission Date: 20140127
  Serious: Yes (Hospitalization, Disabling, Other)
  Sender: FDA-Public Use
  Company Number: US-009507513-1201USA00248

PATIENT
  Sex: 0

DRUGS (5)
  1. FOSAMAX [Suspect]
     Indication: OSTEOPOROSIS
     Dosage: 70 MG, QW
     Route: 048
     Dates: start: 2003, end: 200710
  2. FOSAMAX PLUS D [Suspect]
     Indication: OSTEOPOROSIS
     Dosage: 70 MG, QW
     Route: 048
     Dates: start: 200710, end: 200804
  3. FOSAMAX [Suspect]
     Indication: OSTEOPOROSIS
     Dosage: 70 MG, QW
     Route: 048
     Dates: start: 200804, end: 201205
  4. FOSAMAX [Suspect]
     Dosage: UNK
  5. FOSAMAX [Suspect]
     Dosage: UNK

REACTIONS (47)
  - Open reduction of fracture [Unknown]
  - Open reduction of fracture [Unknown]
  - Femur fracture [Unknown]
  - Femur fracture [Unknown]
  - Anaemia [Unknown]
  - Osteoarthritis [Not Recovered/Not Resolved]
  - Knee arthroplasty [Recovered/Resolved]
  - Calcium deficiency [Unknown]
  - Hypertension [Unknown]
  - Fall [Unknown]
  - Activities of daily living impaired [Unknown]
  - Arthritis [Unknown]
  - Skin ulcer [Unknown]
  - Coronary artery disease [Unknown]
  - Blood cholesterol increased [Unknown]
  - Muscular weakness [Unknown]
  - Gastrooesophageal reflux disease [Unknown]
  - Muscle spasms [Unknown]
  - Pulmonary mass [Unknown]
  - Chronic obstructive pulmonary disease [Unknown]
  - Emphysema [Unknown]
  - Lung infiltration [Unknown]
  - Atelectasis [Unknown]
  - Fall [Unknown]
  - Musculoskeletal chest pain [Unknown]
  - Joint dislocation reduction [Unknown]
  - Joint dislocation [Unknown]
  - Hand fracture [Unknown]
  - Rib fracture [Unknown]
  - Ligament rupture [Unknown]
  - Hernia hiatus repair [Unknown]
  - Hiatus hernia [Unknown]
  - Pain [Unknown]
  - Drug dependence [Unknown]
  - Ear discomfort [Unknown]
  - Inguinal hernia [Unknown]
  - Coronary angioplasty [Unknown]
  - Osteoarthritis [Unknown]
  - Pain [Unknown]
  - Knee deformity [Unknown]
  - Limb deformity [Unknown]
  - Muscle spasms [Unknown]
  - Ligament sprain [Recovering/Resolving]
  - Hernia repair [Unknown]
  - Rib fracture [Recovering/Resolving]
  - Infection [Unknown]
  - Disability [Unknown]
